FAERS Safety Report 8034232-0 (Version None)
Quarter: 2012Q1

REPORT INFORMATION
  Report Type: 
  Country: None (occurrence: None)
  Receive Date: 20120110
  Receipt Date: 20120103
  Transmission Date: 20120608
  Serious: Yes (Hospitalization, Disabling, Other)
  Sender: FDA-Public Use
  Company Number: US-BAYER-2011-037259

PATIENT
  Age: 24 Year
  Sex: Female
  Weight: 56.689 kg

DRUGS (10)
  1. SERTRALINE HYDROCHLORIDE [Concomitant]
     Dosage: 50 MG, OM
     Route: 048
     Dates: start: 20090406
  2. YASMIN [Suspect]
     Dosage: UNK
     Route: 048
     Dates: start: 20050101, end: 20100101
  3. ALBUTEROL [Concomitant]
     Indication: ASTHMA
     Dosage: UNK
  4. NSAID'S [Concomitant]
     Dosage: UNK UNK, PRN
  5. MIGRAINE MEDICATION [Concomitant]
     Dosage: UNK
     Dates: start: 20000101, end: 20090101
  6. DEPAKOTE [Concomitant]
     Dosage: 250 MG, BID
     Route: 048
     Dates: start: 20090406
  7. ACETAMINOPHEN [Concomitant]
     Indication: PAIN
     Dosage: UNK UNK, PRN
     Route: 048
     Dates: start: 20090406
  8. NUVARING [Concomitant]
     Dosage: ON 3 WEEKS/ OFF 1 WEEK
     Route: 067
     Dates: start: 20090406
  9. FLAGYL [Concomitant]
     Dosage: 750 MG, BID
     Route: 048
     Dates: start: 20090406
  10. DROSPIRENONE AND ETHINYL ESTRADIOL [Suspect]
     Dosage: UNK
     Route: 048
     Dates: start: 20050101, end: 20100101

REACTIONS (7)
  - BIPOLAR DISORDER [None]
  - DEPRESSION [None]
  - CHOLECYSTITIS CHRONIC [None]
  - ANXIETY [None]
  - GALLBLADDER DISORDER [None]
  - ANHEDONIA [None]
  - PAIN [None]
